FAERS Safety Report 21577537 (Version 1)
Quarter: 2022Q4

REPORT INFORMATION
  Report Type: Spontaneous
  Country: US (occurrence: None)
  Receive Date: 20221109
  Receipt Date: 20221109
  Transmission Date: 20230112
  Serious: Yes (Death)
  Sender: FDA-Public Use
  Company Number: None

PATIENT
  Age: 70 Year
  Sex: Female
  Weight: 90.4 kg

DRUGS (2)
  1. TEBENTAFUSP-TEBN [Suspect]
     Active Substance: TEBENTAFUSP-TEBN
     Indication: Metastatic ocular melanoma
     Dosage: FREQUENCY : ONCE;?
     Route: 042
     Dates: start: 20221108
  2. ALBUMIN HUMAN [Suspect]
     Active Substance: ALBUMIN HUMAN
     Indication: Drug therapy
     Dosage: OTHER FREQUENCY : ONCE;?
     Route: 042
     Dates: start: 20221108

REACTIONS (8)
  - Respiratory distress [None]
  - Confusional state [None]
  - Lactic acidosis [None]
  - Tachypnoea [None]
  - Hypotension [None]
  - Livedo reticularis [None]
  - Cytokine release syndrome [None]
  - Pulse absent [None]

NARRATIVE: CASE EVENT DATE: 20221108
